FAERS Safety Report 6725252-4 (Version None)
Quarter: 2010Q2

REPORT INFORMATION
  Report Type: 
  Country: None (occurrence: None)
  Receive Date: 20100514
  Receipt Date: 20100507
  Transmission Date: 20101027
  Serious: No
  Sender: FDA-Public Use
  Company Number: US-BAYER-201015295BCC

PATIENT
  Sex: Female
  Weight: 109 kg

DRUGS (3)
  1. ALEVE (CAPLET) [Suspect]
     Indication: SELF-INJURIOUS IDEATION
     Dosage: UNIT DOSE: 220 MG
     Route: 048
     Dates: start: 20100501
  2. ALEVE (CAPLET) [Suspect]
     Dosage: TOTAL DAILY DOSE: 2640 MG  UNIT DOSE: 220 MG
     Route: 048
     Dates: start: 20100507
  3. BIRTH CONTROL PILL [Concomitant]
     Route: 065

REACTIONS (1)
  - NO ADVERSE EVENT [None]
